FAERS Safety Report 7403833-2 (Version None)
Quarter: 2011Q2

REPORT INFORMATION
  Report Type: 
  Country: None (occurrence: None)
  Receive Date: 20110408
  Receipt Date: 20110406
  Transmission Date: 20111010
  Serious: Yes (Death)
  Sender: FDA-Public Use
  Company Number: PHHY2011US28636

PATIENT
  Sex: Female

DRUGS (1)
  1. GILENYA [Suspect]
     Indication: PROGRESSIVE MULTIPLE SCLEROSIS
     Dosage: 0.5 MG, QD
     Route: 048
     Dates: start: 20110329

REACTIONS (1)
  - PROGRESSIVE MULTIPLE SCLEROSIS [None]
